FAERS Safety Report 8989779 (Version 1)
Quarter: 2012Q4

REPORT INFORMATION
  Report Type: 
  Country: US (occurrence: US)
  Receive Date: 20121228
  Receipt Date: 20121228
  Transmission Date: 20130627
  Serious: No
  Sender: FDA-Public Use
  Company Number: US-ASTRAZENECA-2012SE91369

PATIENT
  Age: 66 Year
  Sex: Male
  Weight: 83.9 kg

DRUGS (3)
  1. CRESTOR [Suspect]
     Route: 048
  2. NIASPAN [Suspect]
     Route: 065
     Dates: start: 201210
  3. LIVALO [Suspect]
     Route: 065

REACTIONS (4)
  - Paraesthesia [Recovered/Resolved]
  - Muscle spasms [Unknown]
  - Myalgia [Unknown]
  - Pruritus [Recovered/Resolved]
